FAERS Safety Report 5549185-4 (Version None)
Quarter: 2007Q4

REPORT INFORMATION
  Report Type: 
  Country: None (occurrence: None)
  Receive Date: 20071211
  Receipt Date: 20070417
  Transmission Date: 20080405
  Serious: No
  Sender: FDA-Public Use
  Company Number: US-AMGEN-KDL211988

PATIENT
  Sex: Female

DRUGS (1)
  1. ENBREL [Suspect]
     Indication: PSORIASIS
     Route: 058
     Dates: start: 20061206

REACTIONS (7)
  - ERYTHEMA [None]
  - HYPERSENSITIVITY [None]
  - INJECTION SITE BRUISING [None]
  - INJECTION SITE IRRITATION [None]
  - LOCAL SWELLING [None]
  - PRURITUS [None]
  - RASH [None]
